FAERS Safety Report 23595760 (Version 1)
Quarter: 2024Q1

REPORT INFORMATION
  Report Type: Spontaneous
  Country: US (occurrence: None)
  Receive Date: 20240304
  Receipt Date: 20240304
  Transmission Date: 20240410
  Serious: Yes (Hospitalization)
  Sender: FDA-Public Use
  Company Number: None

PATIENT
  Age: 40 Year
  Sex: Male
  Weight: 91 kg

DRUGS (1)
  1. HECTOROL [Suspect]
     Active Substance: DOXERCALCIFEROL
     Indication: Hyperparathyroidism secondary
     Dosage: OTHER FREQUENCY : EVERY TREATMENT;?
     Route: 040
     Dates: start: 20240228, end: 20240228

REACTIONS (8)
  - Dialysis [None]
  - Blood pressure increased [None]
  - Malaise [None]
  - Headache [None]
  - Neck pain [None]
  - Musculoskeletal stiffness [None]
  - Hyperhidrosis [None]
  - Hypersensitivity [None]

NARRATIVE: CASE EVENT DATE: 20240228
